FAERS Safety Report 9245254 (Version 1)
Quarter: 2013Q2

REPORT INFORMATION
  Report Type: Spontaneous
  Country: US (occurrence: US)
  Receive Date: 20130422
  Receipt Date: 20130422
  Transmission Date: 20140414
  Serious: Yes (Other)
  Sender: FDA-Public Use
  Company Number: US-PFIZER INC-2013125298

PATIENT
  Age: 72 Year
  Sex: Female
  Weight: 86.17 kg

DRUGS (5)
  1. TIKOSYN [Suspect]
     Indication: ATRIAL FIBRILLATION
     Dosage: 500 UG, 2X/DAY
     Route: 048
  2. TIKOSYN [Suspect]
     Dosage: 250 UG, 2X/DAY
     Route: 048
  3. MOBIC [Concomitant]
     Dosage: 15 MG, 1X/DAY
  4. PRILOSEC [Concomitant]
     Indication: DYSPEPSIA
     Dosage: 20 MG, 1X/DAY
  5. ELIQUIS [Concomitant]
     Dosage: UNK, 1X/DAY

REACTIONS (1)
  - Urinary tract infection [Not Recovered/Not Resolved]
